FAERS Safety Report 9699572 (Version 2)
Quarter: 2013Q4

REPORT INFORMATION
  Report Type: Report from Study
  Country: US (occurrence: US)
  Receive Date: 20131120
  Receipt Date: 20131213
  Transmission Date: 20140711
  Serious: Yes (Other)
  Sender: FDA-Public Use
  Company Number: US-B.I. PHARMACEUTICALS,INC./RIDGEFIELD-2013-BI-36910BI

PATIENT
  Age: 80 Year
  Sex: Female

DRUGS (5)
  1. GILOTRIF [Suspect]
     Indication: NON-SMALL CELL LUNG CANCER
     Dosage: 40 MG
     Route: 048
     Dates: start: 20131028
  2. GILOTRIF [Suspect]
     Dosage: DAILY DOSE- EVERY OTHER DAY
     Route: 048
     Dates: start: 20131107
  3. HIGH BLOOD PRESSURE PILL [Concomitant]
  4. VITAMIN [Concomitant]
  5. FOLIC ACID [Concomitant]

REACTIONS (8)
  - Eye burns [Not Recovered/Not Resolved]
  - Diarrhoea [Recovered/Resolved]
  - Dry eye [Not Recovered/Not Resolved]
  - Eyelash thickening [Not Recovered/Not Resolved]
  - Epistaxis [Not Recovered/Not Resolved]
  - Eyelid disorder [Not Recovered/Not Resolved]
  - Rash [Not Recovered/Not Resolved]
  - Nasal dryness [Not Recovered/Not Resolved]
